FAERS Safety Report 14032477 (Version 2)
Quarter: 2017Q4

REPORT INFORMATION
  Report Type: Spontaneous
  Country: US (occurrence: US)
  Receive Date: 20171003
  Receipt Date: 20171017
  Transmission Date: 20180321
  Serious: Yes (Hospitalization, Other)
  Sender: FDA-Public Use
  Company Number: US-DRREDDYS-USA/USA/17/0093807

PATIENT
  Age: 58 Year
  Sex: Male

DRUGS (2)
  1. ATORVASTATIN [Suspect]
     Active Substance: ATORVASTATIN
     Indication: PRODUCT USED FOR UNKNOWN INDICATION
     Route: 065
  2. ATORVASTATIN [Suspect]
     Active Substance: ATORVASTATIN
     Route: 065

REACTIONS (6)
  - Compartment syndrome [Recovered/Resolved]
  - Muscle necrosis [Recovered/Resolved]
  - Myopathy [Unknown]
  - Alanine aminotransferase increased [Unknown]
  - White blood cell count increased [Unknown]
  - Aspartate aminotransferase increased [Unknown]
